FAERS Safety Report 4651773-4 (Version None)
Quarter: 2005Q2

REPORT INFORMATION
  Report Type: 
  Country: None (occurrence: None)
  Receive Date: 20050504
  Receipt Date: 20050329
  Transmission Date: 20051028
  Serious: Yes (Hospitalization)
  Sender: FDA-Public Use
  Company Number: DE-RB-1432-2005

PATIENT
  Sex: Male

DRUGS (1)
  1. BUPRENORPHINE HCL [Suspect]
     Indication: PAIN
     Dosage: DOSAGE UNKNOWN
     Route: 060

REACTIONS (1)
  - RENAL FAILURE ACUTE [None]
